FAERS Safety Report 4484012-8 (Version None)
Quarter: 2004Q4

REPORT INFORMATION
  Report Type: 
  Country: None (occurrence: None)
  Receive Date: 20041020
  Receipt Date: 20041005
  Transmission Date: 20050328
  Serious: Yes (Disabling, Other)
  Sender: FDA-Public Use
  Company Number: US_0410106414

PATIENT
  Age: 56 Year
  Sex: Male
  Weight: 114 kg

DRUGS (2)
  1. HUMULIN R [Suspect]
     Indication: DIABETES MELLITUS
     Dates: start: 20000101
  2. NOVOLIN N [Concomitant]

REACTIONS (6)
  - BLINDNESS [None]
  - CARDIAC FAILURE CONGESTIVE [None]
  - EYE HAEMORRHAGE [None]
  - PROTEINURIA [None]
  - RENAL DISORDER [None]
  - WEIGHT INCREASED [None]
